FAERS Safety Report 7080629-5 (Version None)
Quarter: 2010Q4

REPORT INFORMATION
  Report Type: 
  Country: None (occurrence: None)
  Receive Date: 20101103
  Receipt Date: 20101026
  Transmission Date: 20110411
  Serious: Yes (Other)
  Sender: FDA-Public Use
  Company Number: US-GILEAD-2010-0033010

PATIENT
  Age: 57 Year
  Sex: Male

DRUGS (1)
  1. LETAIRIS [Suspect]
     Indication: PULMONARY ARTERIAL HYPERTENSION
     Dates: start: 20080630

REACTIONS (2)
  - BLOOD BILIRUBIN INCREASED [None]
  - TRANSAMINASES INCREASED [None]
